FAERS Safety Report 18418964 (Version 1)
Quarter: 2020Q4

REPORT INFORMATION
  Report Type: Spontaneous
  Country: US (occurrence: US)
  Receive Date: 20201022
  Receipt Date: 20201022
  Transmission Date: 20210114
  Serious: Yes (Other)
  Sender: FDA-Public Use
  Company Number: None

PATIENT
  Sex: Male

DRUGS (1)
  1. OMEPRAZOLE. [Suspect]
     Active Substance: OMEPRAZOLE

REACTIONS (5)
  - Therapeutic response decreased [None]
  - Therapeutic product effect incomplete [None]
  - Gastrooesophageal reflux disease [None]
  - Wheezing [None]
  - Product substitution issue [None]
